FAERS Safety Report 10435387 (Version 3)
Quarter: 2014Q3

REPORT INFORMATION
  Report Type: Report from Study
  Country: NL (occurrence: NL)
  Receive Date: 20140908
  Receipt Date: 20140912
  Transmission Date: 20150326
  Serious: Yes (Hospitalization)
  Sender: FDA-Public Use
  Company Number: NL-ROCHE-1452231

PATIENT
  Sex: Male
  Weight: 72.6 kg

DRUGS (7)
  1. DOCETAXEL [Suspect]
     Active Substance: DOCETAXEL
     Indication: GASTRIC CANCER
     Dosage: LAST TREATMENT ON 08/AUG/2014; CUMULATIVE DOSE: 96 MG
     Route: 042
     Dates: start: 20140502
  2. CEFUROXIM [Concomitant]
     Active Substance: CEFUROXIME
     Route: 065
     Dates: start: 20140818
  3. OXALIPLATIN. [Suspect]
     Active Substance: OXALIPLATIN
     Indication: GASTRIC CANCER
     Dosage: LAST TREATMENT ON 08/AUG/2014; CUMULATIVE DOSE:
     Route: 042
     Dates: start: 20140502
  4. BEVACIZUMAB [Suspect]
     Active Substance: BEVACIZUMAB
     Indication: GASTRIC CANCER
     Dosage: LAST TREATMENT ON 08/AUG/2014; CUMULATIVE DOSE: 550 MG
     Route: 042
     Dates: start: 20140502
  5. METOCLOPRAMIDE. [Concomitant]
     Active Substance: METOCLOPRAMIDE
     Route: 065
     Dates: start: 20140817
  6. GENTAMICIN [Concomitant]
     Active Substance: GENTAMICIN
     Route: 065
     Dates: start: 20140818
  7. CAPECITABINE [Suspect]
     Active Substance: CAPECITABINE
     Indication: GASTRIC CANCER
     Dosage: LAST TREATMENT ON 08/AUG/2014; CUMULATIVE DOSE: 3300 MG
     Route: 048
     Dates: start: 20140502

REACTIONS (4)
  - Vomiting [Unknown]
  - Nausea [Unknown]
  - Cough [Unknown]
  - Chills [Unknown]

NARRATIVE: CASE EVENT DATE: 20140816
